FAERS Safety Report 8134309-5 (Version None)
Quarter: 2012Q1

REPORT INFORMATION
  Report Type: 
  Country: None (occurrence: None)
  Receive Date: 20120209
  Receipt Date: 20120126
  Transmission Date: 20120608
  Serious: Yes (Other)
  Sender: FDA-Public Use
  Company Number: JPI-P-019512

PATIENT
  Age: 24 Year
  Sex: Female
  Weight: 61.2356 kg

DRUGS (4)
  1. AMPHETAMINE AND DEXTROAMPHETAMINE SALTS [Concomitant]
  2. LEVONORGESTREL [Concomitant]
  3. XYREM [Suspect]
     Indication: CATAPLEXY
     Dosage: ORAL, 7.5 GM (3.75 GM, 2 IN 1 D), ORAL
     Route: 048
     Dates: start: 20110601
  4. XYREM [Suspect]
     Indication: CATAPLEXY
     Dosage: ORAL, 7.5 GM (3.75 GM, 2 IN 1 D), ORAL
     Route: 048
     Dates: start: 20110101

REACTIONS (4)
  - INFLUENZA LIKE ILLNESS [None]
  - ABDOMINAL DISTENSION [None]
  - OVARIAN CYST RUPTURED [None]
  - DIARRHOEA [None]
